FAERS Safety Report 18255744 (Version 2)
Quarter: 2020Q4

REPORT INFORMATION
  Report Type: Report from Study
  Country: US (occurrence: US)
  Receive Date: 20200911
  Receipt Date: 20201103
  Transmission Date: 20210113
  Serious: No
  Sender: FDA-Public Use
  Company Number: NVSC2020US245437

PATIENT
  Sex: Female
  Weight: 63.49 kg

DRUGS (2)
  1. ILARIS [Suspect]
     Active Substance: CANAKINUMAB
     Indication: PYREXIA
  2. ILARIS [Suspect]
     Active Substance: CANAKINUMAB
     Indication: PALINDROMIC RHEUMATISM
     Dosage: 150 MG, QMO
     Route: 058

REACTIONS (1)
  - Pain [Unknown]
